FAERS Safety Report 4692517-X (Version None)
Quarter: 2005Q2

REPORT INFORMATION
  Report Type: 
  Country: None (occurrence: None)
  Receive Date: 20050613
  Receipt Date: 20050331
  Transmission Date: 20051028
  Serious: No
  Sender: FDA-Public Use
  Company Number: 2005-00686

PATIENT
  Age: 58 Year
  Sex: Female
  Weight: 71.7 kg

DRUGS (2)
  1. VELCADE [Suspect]
     Indication: MULTIPLE MYELOMA
     Dosage: 2/WEEK, INTRAVENOUS
     Route: 042
     Dates: start: 20050101, end: 20050318
  2. ESTRADIOL [Concomitant]

REACTIONS (4)
  - HYPOAESTHESIA [None]
  - NEUROPATHY [None]
  - PAIN IN EXTREMITY [None]
  - PARAESTHESIA [None]
